FAERS Safety Report 13065014 (Version 1)
Quarter: 2016Q4

REPORT INFORMATION
  Report Type: Spontaneous
  Country: JP (occurrence: JP)
  Receive Date: 20161227
  Receipt Date: 20161227
  Transmission Date: 20170207
  Serious: Yes (Hospitalization)
  Sender: FDA-Public Use
  Company Number: JP-ASTELLAS-2016JP022491

PATIENT
  Age: 2 Year
  Sex: Male

DRUGS (1)
  1. VESICARE [Suspect]
     Active Substance: SOLIFENACIN SUCCINATE
     Indication: ACCIDENTAL EXPOSURE TO PRODUCT BY CHILD
     Route: 048

REACTIONS (8)
  - Tachycardia [Recovering/Resolving]
  - Dry mouth [Recovering/Resolving]
  - Depressed level of consciousness [Recovering/Resolving]
  - Overdose [Unknown]
  - Accidental exposure to product by child [Unknown]
  - Urinary retention [Recovering/Resolving]
  - Pyrexia [Recovering/Resolving]
  - Flushing [Recovering/Resolving]
